FAERS Safety Report 9386293 (Version 1)
Quarter: 2013Q3

REPORT INFORMATION
  Report Type: Spontaneous
  Country: GB (occurrence: GB)
  Receive Date: 20130708
  Receipt Date: 20130708
  Transmission Date: 20140515
  Serious: Yes (Other)
  Sender: FDA-Public Use
  Company Number: GB-009507513-1307GBR000011

PATIENT
  Sex: Male

DRUGS (1)
  1. ORGARAN [Suspect]
     Indication: PROPHYLAXIS
     Dosage: UNK

REACTIONS (1)
  - Surgery [Unknown]
